FAERS Safety Report 5657153-7 (Version None)
Quarter: 2008Q1

REPORT INFORMATION
  Report Type: 
  Country: None (occurrence: None)
  Receive Date: 20080310
  Receipt Date: 20080226
  Transmission Date: 20080703
  Serious: Yes (Hospitalization)
  Sender: FDA-Public Use
  Company Number: NL-JNJFOC-20080206786

PATIENT
  Age: 68 Year
  Sex: Female

DRUGS (4)
  1. INFLIXIMAB [Suspect]
     Route: 042
  2. INFLIXIMAB [Suspect]
     Dosage: WEEK 6
     Route: 042
  3. INFLIXIMAB [Suspect]
     Dosage: WEEK 2
     Route: 042
  4. INFLIXIMAB [Suspect]
     Indication: RHEUMATOID ARTHRITIS
     Dosage: WEEK 0
     Route: 042

REACTIONS (2)
  - PERITONEAL TUBERCULOSIS [None]
  - TUBERCULIN TEST POSITIVE [None]
